FAERS Safety Report 8006286-9 (Version None)
Quarter: 2011Q4

REPORT INFORMATION
  Report Type: 
  Country: None (occurrence: None)
  Receive Date: 20111226
  Receipt Date: 20111213
  Transmission Date: 20120403
  Serious: Yes (Other)
  Sender: FDA-Public Use
  Company Number: US-BAYER-2011-120024

PATIENT
  Age: 32 Year
  Sex: Female

DRUGS (3)
  1. YAZ [Suspect]
     Dosage: UNK
     Dates: start: 20070101, end: 20070101
  2. MIRENA [Suspect]
     Indication: CONTRACEPTION
     Dosage: 20 MCG/24HR, CONT
     Route: 015
     Dates: start: 20111102
  3. ZOLOFT [Concomitant]
     Dosage: UNK
     Dates: start: 20070101

REACTIONS (9)
  - POST PROCEDURAL HAEMORRHAGE [None]
  - NAUSEA [None]
  - PANIC ATTACK [None]
  - HYPOAESTHESIA [None]
  - CHOLELITHIASIS [None]
  - PARAESTHESIA [None]
  - MIGRAINE [None]
  - GALLBLADDER DISORDER [None]
  - BREAST PAIN [None]
